FAERS Safety Report 20207443 (Version 1)
Quarter: 2021Q4

REPORT INFORMATION
  Report Type: Spontaneous
  Country: CN (occurrence: CN)
  Receive Date: 20211220
  Receipt Date: 20211220
  Transmission Date: 20220303
  Serious: Yes (Hospitalization, Other)
  Sender: FDA-Public Use
  Company Number: CN-PFIZER INC-202101741279

PATIENT
  Age: 91 Year
  Sex: Female
  Weight: 50 kg

DRUGS (2)
  1. PIPERACILLIN SODIUM\TAZOBACTAM SODIUM [Suspect]
     Active Substance: PIPERACILLIN SODIUM\TAZOBACTAM SODIUM
     Indication: Pneumonia
     Dosage: 4.5 G, 3X/DAY
     Route: 041
     Dates: start: 20211102, end: 20211112
  2. SODIUM CHLORIDE [Concomitant]
     Active Substance: SODIUM CHLORIDE
     Indication: Vehicle solution use
     Dosage: 100 ML, 3X/DAY
     Route: 041
     Dates: start: 20211102, end: 20211112

REACTIONS (3)
  - Dysbiosis [Recovering/Resolving]
  - Diarrhoea [Recovering/Resolving]
  - Dermatitis diaper [Recovering/Resolving]

NARRATIVE: CASE EVENT DATE: 20211101
